FAERS Safety Report 10260087 (Version 2)
Quarter: 2014Q3

REPORT INFORMATION
  Report Type: Spontaneous
  Country: US (occurrence: US)
  Receive Date: 20140625
  Receipt Date: 20140808
  Transmission Date: 20150326
  Serious: Yes (Death)
  Sender: FDA-Public Use
  Company Number: CHPA2014US008624

PATIENT
  Sex: Female

DRUGS (1)
  1. BUCKLEY^S UNKNOWN [Suspect]
     Active Substance: DEXTROMETHORPHAN
     Dosage: UNK
     Route: 048

REACTIONS (1)
  - Death [Fatal]

NARRATIVE: CASE EVENT DATE: 20080808
